FAERS Safety Report 7981477-1 (Version None)
Quarter: 2011Q4

REPORT INFORMATION
  Report Type: 
  Country: None (occurrence: None)
  Receive Date: 20111215
  Receipt Date: 20111208
  Transmission Date: 20120403
  Serious: Yes (Other)
  Sender: FDA-Public Use
  Company Number: IE-PFIZER INC-2011299778

PATIENT
  Age: 42 Year
  Sex: Female

DRUGS (2)
  1. VARENICLINE TARTRATE [Suspect]
     Indication: SMOKING CESSATION THERAPY
     Dosage: UNK
  2. PROZAC [Interacting]
     Indication: DEPRESSION
     Dosage: UNK

REACTIONS (8)
  - DRUG INTERACTION [None]
  - CRYING [None]
  - THINKING ABNORMAL [None]
  - AGGRESSION [None]
  - ALCOHOL INTERACTION [None]
  - DYSARTHRIA [None]
  - HOSTILITY [None]
  - ABNORMAL BEHAVIOUR [None]
